FAERS Safety Report 5255677-8 (Version None)
Quarter: 2007Q1

REPORT INFORMATION
  Report Type: 
  Country: None (occurrence: None)
  Receive Date: 20070305
  Receipt Date: 20070222
  Transmission Date: 20070707
  Serious: Yes (Hospitalization)
  Sender: FDA-Public Use
  Company Number: AR-GILEAD-2006-0010899

PATIENT
  Sex: Female

DRUGS (5)
  1. TRUVADA [Suspect]
     Indication: HIV INFECTION
     Route: 048
     Dates: start: 20060609, end: 20061219
  2. LOPINAVIR/RITONAVIR [Concomitant]
     Indication: HIV INFECTION
     Route: 048
     Dates: start: 20060609, end: 20061219
  3. LOPINAVIR/RITONAVIR [Concomitant]
     Route: 048
     Dates: start: 20061219
  4. 3TC COMPLEX [Concomitant]
     Indication: HIV INFECTION
     Dates: start: 20061219
  5. BACTRIM [Concomitant]
     Dates: start: 20060420

REACTIONS (1)
  - ABORTION SPONTANEOUS [None]
